FAERS Safety Report 8915585 (Version 2)
Quarter: 2013Q1

REPORT INFORMATION
  Report Type: Spontaneous
  Country: US (occurrence: US)
  Receive Date: 20121119
  Receipt Date: 20130207
  Transmission Date: 20140127
  Serious: Yes (Death)
  Sender: FDA-Public Use
  Company Number: US-GILEAD-2012-0064806

PATIENT
  Sex: Female

DRUGS (11)
  1. LETAIRIS [Suspect]
     Indication: PULMONARY HYPERTENSION
     Dosage: 10 MG, QD
     Route: 048
     Dates: start: 20110503
  2. LETAIRIS [Suspect]
     Indication: SARCOIDOSIS
  3. TYVASO [Concomitant]
  4. DIGOXIN [Concomitant]
  5. LASIX                              /00032601/ [Concomitant]
  6. PREDNISONE [Concomitant]
  7. ASA [Concomitant]
  8. OMEPRAZOLE [Concomitant]
  9. HYDROCODONE [Concomitant]
  10. SPIRIVA [Concomitant]
  11. SYMBICORT [Concomitant]

REACTIONS (1)
  - Death [Fatal]
